FAERS Safety Report 7275705-8 (Version None)
Quarter: 2011Q1

REPORT INFORMATION
  Report Type: 
  Country: None (occurrence: None)
  Receive Date: 20110131
  Receipt Date: 20110117
  Transmission Date: 20110831
  Serious: Yes (Hospitalization)
  Sender: FDA-Public Use
  Company Number: 022285

PATIENT
  Sex: Male

DRUGS (2)
  1. KEPPRA [Suspect]
     Dosage: DOSE INCREASED; 1.8 ML BID; 1.8 ML/D
     Dates: start: 20100101, end: 20100101
  2. KEPPRA [Suspect]
     Dosage: DOSE INCREASED; 1.8 ML BID; 1.8 ML/D
     Dates: start: 20100401

REACTIONS (3)
  - COUGH [None]
  - MUSCLE SPASMS [None]
  - NASOPHARYNGITIS [None]
